FAERS Safety Report 20919718 (Version 1)
Quarter: 2022Q2

REPORT INFORMATION
  Report Type: Spontaneous
  Country: US (occurrence: US)
  Receive Date: 20220606
  Receipt Date: 20220606
  Transmission Date: 20220721
  Serious: Yes (Hospitalization)
  Sender: FDA-Public Use
  Company Number: US-GLAXOSMITHKLINE-USCH2022019468

PATIENT
  Age: 50 Year
  Sex: Female

DRUGS (1)
  1. SENSODYNE PRONAMEL FRESH BREATH [Suspect]
     Active Substance: POTASSIUM NITRATE\SODIUM FLUORIDE
     Indication: Hyperaesthesia teeth
     Dosage: UNK
     Dates: end: 20220520

REACTIONS (3)
  - Sensation of foreign body [Recovering/Resolving]
  - Toothache [Recovering/Resolving]
  - Swelling [Recovering/Resolving]
